FAERS Safety Report 11495165 (Version 1)
Quarter: 2015Q3

REPORT INFORMATION
  Report Type: Spontaneous
  Country: US (occurrence: US)
  Receive Date: 20150911
  Receipt Date: 20150911
  Transmission Date: 20151125
  Serious: Yes (Other)
  Sender: FDA-Public Use
  Company Number: US-CELGENE-USA-2015022422

PATIENT

DRUGS (9)
  1. REVLIMID [Suspect]
     Active Substance: LENALIDOMIDE
     Indication: PLASMA CELL MYELOMA
     Route: 048
  2. BORTEZOMIB [Suspect]
     Active Substance: BORTEZOMIB
     Indication: PLASMA CELL MYELOMA
     Route: 058
  3. BORTEZOMIB [Suspect]
     Active Substance: BORTEZOMIB
     Route: 058
  4. DEXAMETHASONE. [Suspect]
     Active Substance: DEXAMETHASONE
     Route: 048
  5. ELOTUZUMAB [Suspect]
     Active Substance: ELOTUZUMAB
     Indication: PLASMA CELL MYELOMA
     Route: 041
  6. REVLIMID [Suspect]
     Active Substance: LENALIDOMIDE
     Route: 048
  7. DEXAMETHASONE. [Suspect]
     Active Substance: DEXAMETHASONE
     Indication: PLASMA CELL MYELOMA
     Route: 048
  8. ELOTUZUMAB [Suspect]
     Active Substance: ELOTUZUMAB
     Route: 041
  9. ELOTUZUMAB [Suspect]
     Active Substance: ELOTUZUMAB
     Route: 041

REACTIONS (50)
  - Contusion [Unknown]
  - Ear disorder [Unknown]
  - Injection site reaction [Unknown]
  - Irritability [Unknown]
  - Muscular weakness [Unknown]
  - Skin hyperpigmentation [Unknown]
  - Upper respiratory tract infection [Unknown]
  - Vision blurred [Unknown]
  - Neuropathy peripheral [Unknown]
  - Dyspnoea [Unknown]
  - Influenza like illness [Unknown]
  - Gastrooesophageal reflux disease [Unknown]
  - Hypertension [Unknown]
  - Skin disorder [Unknown]
  - Leukopenia [Unknown]
  - Fatigue [Unknown]
  - Alanine aminotransferase increased [Unknown]
  - Blood alkaline phosphatase increased [Unknown]
  - Anxiety [Unknown]
  - Back pain [Unknown]
  - Dry skin [Unknown]
  - Sinus bradycardia [Unknown]
  - Embolism [Unknown]
  - Tinnitus [Unknown]
  - White blood cell count decreased [Unknown]
  - Aspartate aminotransferase increased [Unknown]
  - Decreased appetite [Unknown]
  - Arthralgia [Unknown]
  - Immune system disorder [Unknown]
  - Infection [Unknown]
  - Erythema multiforme [Unknown]
  - Blood creatinine increased [Unknown]
  - Hypokalaemia [Unknown]
  - Nausea [Unknown]
  - Rash maculo-papular [Unknown]
  - Weight decreased [Unknown]
  - Lymphopenia [Unknown]
  - Thrombocytopenia [Unknown]
  - Abdominal distension [Unknown]
  - Constipation [Unknown]
  - Nervous system disorder [Unknown]
  - Leukocytosis [Unknown]
  - Cardiac failure [Unknown]
  - Peripheral sensory neuropathy [Unknown]
  - Neutropenia [Unknown]
  - Oedema [Unknown]
  - Abdominal pain [Unknown]
  - Diarrhoea [Unknown]
  - Insomnia [Unknown]
  - Vomiting [Unknown]
